FAERS Safety Report 15236767 (Version 2)
Quarter: 2018Q3

REPORT INFORMATION
  Report Type: Report from Study
  Country: FR (occurrence: FR)
  Receive Date: 20180803
  Receipt Date: 20180829
  Transmission Date: 20181010
  Serious: Yes (Hospitalization)
  Sender: FDA-Public Use
  Company Number: FR-ACTELION-A-CH2018-166405

PATIENT
  Age: 65 Year
  Sex: Female
  Weight: 56 kg

DRUGS (15)
  1. RABEPRAZOLE [Concomitant]
     Active Substance: RABEPRAZOLE
     Dosage: UNK
     Dates: start: 2009
  2. SEROPLEX [Concomitant]
     Active Substance: ESCITALOPRAM OXALATE
     Dosage: UNK
     Dates: start: 2005
  3. INORIAL [Concomitant]
     Active Substance: BILASTINE
     Dosage: UNK
     Dates: start: 2008
  4. TARDYFERON [Concomitant]
     Active Substance: FERROUS SULFATE
     Dosage: UNK
     Dates: start: 20170520
  5. TEMESTA [Concomitant]
     Dosage: UNK
     Dates: start: 2005
  6. MACITENTAN [Suspect]
     Active Substance: MACITENTAN
     Indication: PORTOPULMONARY HYPERTENSION
     Dosage: 1 DF, QD
     Route: 048
     Dates: start: 20170519
  7. MACITENTAN [Suspect]
     Active Substance: MACITENTAN
     Indication: PORTOPULMONARY HYPERTENSION
     Dosage: 1 DF, QD
     Route: 048
     Dates: start: 20170519
  8. LEVOTHYROX [Concomitant]
     Active Substance: LEVOTHYROXINE
     Dosage: UNK
     Dates: start: 2009
  9. MACITENTAN [Suspect]
     Active Substance: MACITENTAN
     Dosage: 1 DF, QD
     Route: 048
     Dates: start: 20170223, end: 20170518
  10. LASILIX [Concomitant]
     Active Substance: FUROSEMIDE
     Dosage: UNK
     Dates: start: 20170520
  11. TANGANIL [Concomitant]
     Active Substance: ACETYLLEUCINE
     Dosage: UNK
     Dates: start: 2015
  12. DIFFU K [Concomitant]
     Active Substance: POTASSIUM CHLORIDE
     Dosage: UNK
     Dates: start: 201802
  13. MACITENTAN [Suspect]
     Active Substance: MACITENTAN
     Dosage: 1 DF, QD
     Route: 048
     Dates: start: 20170223, end: 20170518
  14. REVATIO [Concomitant]
     Active Substance: SILDENAFIL CITRATE
     Dosage: UNK
     Dates: start: 20170520
  15. ALDACTONE [Concomitant]
     Active Substance: SPIRONOLACTONE
     Dosage: UNK
     Dates: start: 20180117

REACTIONS (5)
  - Hepatic failure [Recovered/Resolved]
  - Hepatic atrophy [Recovered/Resolved]
  - Ascites [Recovered/Resolved]
  - Paracentesis [Unknown]
  - Oedema peripheral [Recovered/Resolved]

NARRATIVE: CASE EVENT DATE: 20180115
